FAERS Safety Report 19406841 (Version 1)
Quarter: 2021Q2

REPORT INFORMATION
  Report Type: Spontaneous
  Country: FR (occurrence: FR)
  Receive Date: 20210612
  Receipt Date: 20210612
  Transmission Date: 20210717
  Serious: Yes (Death)
  Sender: FDA-Public Use
  Company Number: FR-ROCHE-2680179

PATIENT
  Sex: Male

DRUGS (2)
  1. ROACTEMRA [Suspect]
     Active Substance: TOCILIZUMAB
     Indication: LUNG TRANSPLANT
     Dosage: RECEIVED 3 VIALS OF 400 MG AND 3 VIALS OF 80 MG OF ROACTEMRA 20 MG/ML SOLUTION FOR INFUSION FOR A DU
     Route: 042
  2. ROACTEMRA [Suspect]
     Active Substance: TOCILIZUMAB
     Indication: TRANSPLANT REJECTION
     Route: 042
     Dates: start: 20201228

REACTIONS (2)
  - Pseudomonas bronchitis [Fatal]
  - Off label use [Unknown]
